FAERS Safety Report 4902059-1 (Version None)
Quarter: 2006Q1

REPORT INFORMATION
  Report Type: 
  Country: None (occurrence: None)
  Receive Date: 20060206
  Receipt Date: 20051220
  Transmission Date: 20060701
  Serious: Yes (Life-Threatening, Hospitalization, Disabling)
  Sender: FDA-Public Use
  Company Number: US-GLAXOSMITHKLINE-A0586636A

PATIENT
  Age: 68 Year
  Sex: Male
  Weight: 72.7 kg

DRUGS (8)
  1. REQUIP [Suspect]
     Indication: RESTLESS LEGS SYNDROME
     Dosage: 25MG PER DAY
     Route: 048
     Dates: start: 20051215, end: 20051220
  2. C-PAP [Concomitant]
  3. LOTREL [Concomitant]
  4. LORAZEPAM [Concomitant]
     Dosage: 2MG TWICE PER DAY
     Route: 048
  5. NEXIUM [Concomitant]
     Dosage: 20MG PER DAY
     Route: 048
  6. ZOCOR [Concomitant]
     Dosage: 20MG PER DAY
     Route: 048
  7. ZOLOFT [Concomitant]
     Dosage: 50MG PER DAY
     Route: 048
  8. ZANAFLEX [Concomitant]
     Dosage: 4MG THREE TIMES PER DAY
     Route: 048

REACTIONS (1)
  - CEREBROVASCULAR ACCIDENT [None]
